FAERS Safety Report 15970519 (Version 1)
Quarter: 2019Q1

REPORT INFORMATION
  Report Type: Report from Study
  Country: US (occurrence: US)
  Receive Date: 20190215
  Receipt Date: 20190215
  Transmission Date: 20190418
  Serious: No
  Sender: FDA-Public Use
  Company Number: US-AMAG PHARMACEUTICALS, INC.-AMAG201803357

PATIENT
  Age: 30 Year
  Sex: Female

DRUGS (3)
  1. MAKENA [Suspect]
     Active Substance: HYDROXYPROGESTERONE CAPROATE
     Indication: PREMATURE DELIVERY
     Dosage: 250 MG/ML, WEEKLY
     Route: 058
     Dates: start: 20180504, end: 20180606
  2. PROGESTERONE. [Concomitant]
     Active Substance: PROGESTERONE
     Indication: PREMATURE DELIVERY
     Dosage: 100 MG, QD
     Route: 065
     Dates: start: 20180614
  3. PRENATAL VITAMINS [Concomitant]
     Active Substance: VITAMINS
     Indication: PREGNANCY
     Dosage: 1 TABS, QD
     Route: 048
     Dates: start: 20180316

REACTIONS (3)
  - Incorrect dose administered by device [Unknown]
  - Hypersensitivity [Recovered/Resolved]
  - Product dose omission [Unknown]

NARRATIVE: CASE EVENT DATE: 20180525
